FAERS Safety Report 5924020-0 (Version None)
Quarter: 2008Q4

REPORT INFORMATION
  Report Type: 
  Country: None (occurrence: None)
  Receive Date: 20081020
  Receipt Date: 20081013
  Transmission Date: 20090506
  Serious: Yes (Other)
  Sender: FDA-Public Use
  Company Number: PHHY2008GB23847

PATIENT
  Sex: Female

DRUGS (1)
  1. CLIMAVAL [Suspect]
     Dosage: 1 MG, QD
     Route: 048

REACTIONS (3)
  - GASTRIC DISORDER [None]
  - GASTRIC OPERATION [None]
  - MEDICAL DIET [None]
